FAERS Safety Report 7698379 (Version 4)
Quarter: 2013Q4

REPORT INFORMATION
  Report Type: Spontaneous
  Country: US (occurrence: US)
  Receive Date: 20101208
  Receipt Date: 20131223
  Transmission Date: 20140711
  Serious: Yes (Hospitalization, Other)
  Sender: FDA-Public Use
  Company Number: US-BAYER-201041071NA

PATIENT
  Age: 16 Year
  Sex: Female
  Weight: 50 kg

DRUGS (12)
  1. YAZ [Suspect]
     Indication: MENSTRUAL DISORDER
     Dosage: UNK UNK, UNK
     Route: 048
     Dates: start: 200803, end: 200909
  2. IBUPROFEN [Concomitant]
     Indication: HEADACHE
  3. ZOLOFT [Concomitant]
     Indication: PANIC ATTACK
     Dosage: 50 MG (DAILY DOSE), ,
  4. ZOLOFT [Concomitant]
     Indication: DEPRESSION
  5. NEXIUM [Concomitant]
     Dosage: 40 MG (DAILY DOSE), ,
  6. REGLAN [Concomitant]
     Indication: VOMITING
     Dosage: BEFORE MEALS
  7. REGLAN [Concomitant]
     Indication: NAUSEA
  8. ZANTAC [Concomitant]
     Dosage: 50 MG (DAILY DOSE), BID,
  9. NAPROXEN [Concomitant]
     Dosage: 550 MG, UNK
  10. AMOXICILLIN [Concomitant]
     Dosage: 500 MG, UNK
  11. AZITHROMYCIN [Concomitant]
     Dosage: 250 MG, UNK
  12. NORTRIPTYLINE [Concomitant]
     Dosage: 25 MG, UNK

REACTIONS (9)
  - Injury [None]
  - Biliary dyskinesia [Unknown]
  - Cholecystitis chronic [None]
  - Pneumomediastinum [None]
  - Nausea [Unknown]
  - Abdominal pain upper [Unknown]
  - Diarrhoea [None]
  - Depression [Unknown]
  - Mental disorder [None]
